FAERS Safety Report 6315494-4 (Version None)
Quarter: 2009Q3

REPORT INFORMATION
  Report Type: 
  Country: None (occurrence: None)
  Receive Date: 20090819
  Receipt Date: 20090813
  Transmission Date: 20100115
  Serious: Yes (Hospitalization)
  Sender: FDA-Public Use
  Company Number: GB-ABBOTT-09P-167-0591197-00

PATIENT
  Sex: Male
  Weight: 102 kg

DRUGS (8)
  1. HUMIRA [Suspect]
     Indication: RHEUMATOID ARTHRITIS
     Route: 058
     Dates: start: 20070321
  2. METHOTREXATE [Concomitant]
     Indication: DRUG USE FOR UNKNOWN INDICATION
     Dosage: BASELINE; 20-JUN-2007
  3. AMITRIPTYLINE [Concomitant]
     Indication: DRUG USE FOR UNKNOWN INDICATION
     Dosage: BASELINE; 20-JUN-2007
  4. AMLODIPINE [Concomitant]
     Indication: DRUG USE FOR UNKNOWN INDICATION
     Dosage: BASELINE; 20-JUN-2007
  5. ENALAPRIL MALEATE [Concomitant]
     Indication: DRUG USE FOR UNKNOWN INDICATION
     Dosage: BASELINE; 20-JUN-2007
  6. FOLIC ACID [Concomitant]
     Indication: DRUG USE FOR UNKNOWN INDICATION
     Dosage: BASELINE; 20-JUN-2007
  7. LANSOPRAZOLE [Concomitant]
     Indication: DRUG USE FOR UNKNOWN INDICATION
     Dosage: BASELINE; 20-JUN-2007
  8. MOBIC [Concomitant]
     Indication: DRUG USE FOR UNKNOWN INDICATION
     Dosage: BASELINE; 20-JUN-2007

REACTIONS (1)
  - UMBILICAL HERNIA [None]
